FAERS Safety Report 4354988-8 (Version None)
Quarter: 2004Q2

REPORT INFORMATION
  Report Type: 
  Country: None (occurrence: None)
  Receive Date: 20040504
  Receipt Date: 20040427
  Transmission Date: 20050107
  Serious: Yes (Hospitalization)
  Sender: FDA-Public Use
  Company Number: 23822

PATIENT
  Age: 80 Year
  Sex: Male

DRUGS (7)
  1. ALDARA [Suspect]
     Indication: ACTINIC KERATOSIS
     Dosage: (0.1 SACHET, 1 IN 1 DAY(S), TOPICAL
     Route: 061
     Dates: start: 20040401
  2. METOPROLOL [Suspect]
  3. VALSARTAN [Concomitant]
  4. HYDROCHLOROTHIAZIDE [Concomitant]
  5. ADVICOR [Concomitant]
  6. TIMOPTIC [Concomitant]
  7. TESTOSTERONE [Concomitant]

REACTIONS (6)
  - APPLICATION SITE BLEEDING [None]
  - APPLICATION SITE DESQUAMATION [None]
  - ARTERIAL OCCLUSIVE DISEASE [None]
  - BLOOD PRESSURE DECREASED [None]
  - DIZZINESS [None]
  - TRANSIENT ISCHAEMIC ATTACK [None]
